FAERS Safety Report 6134867-6 (Version None)
Quarter: 2009Q1

REPORT INFORMATION
  Report Type: 
  Country: None (occurrence: None)
  Receive Date: 20090327
  Receipt Date: 20090316
  Transmission Date: 20090719
  Serious: Yes (Hospitalization)
  Sender: FDA-Public Use
  Company Number: ES-PFIZER INC-2009184167

PATIENT

DRUGS (10)
  1. EPLERENONE [Suspect]
     Dosage: 25 MG, 1X/DAY
     Route: 048
     Dates: start: 20080801
  2. NORVASC [Suspect]
     Dosage: 5 MG, 2X/DAY
     Route: 048
     Dates: start: 20080801, end: 20090131
  3. NITROGLYCERIN [Suspect]
     Dosage: 15 MG, 1X/DAY
     Dates: start: 20080801
  4. ACETYLSALICYLIC ACID SRT [Suspect]
     Dosage: 100 MG, 1X/DAY
     Route: 048
     Dates: start: 20090801
  5. DIGOXIN [Suspect]
     Dosage: 0.12 MG, 1X/DAY
     Dates: start: 20080801
  6. COROPRES [Suspect]
     Dosage: 6.25 MG, 1X/DAY
     Route: 048
     Dates: start: 20080801
  7. ZOCOR [Suspect]
     Dosage: 40 MG, 1X/DAY
     Route: 048
     Dates: start: 20080801, end: 20090131
  8. OMEPRAZOLE [Suspect]
     Dosage: 40 MG, 1X/DAY
     Route: 048
     Dates: start: 20080801
  9. ENALAPRIL [Concomitant]
     Dosage: 10 MG, 2X/DAY
     Route: 048
  10. SERETIDE [Concomitant]
     Dosage: UNK
     Dates: start: 20060101

REACTIONS (1)
  - DIABETES MELLITUS [None]
